FAERS Safety Report 5221120-8 (Version None)
Quarter: 2007Q1

REPORT INFORMATION
  Report Type: 
  Country: None (occurrence: None)
  Receive Date: 20070124
  Receipt Date: 20070113
  Transmission Date: 20070707
  Serious: Yes (Other)
  Sender: FDA-Public Use
  Company Number: 2007303084

PATIENT
  Age: 80 Year
  Sex: Male
  Weight: 87.1 kg

DRUGS (4)
  1. ROGAINE [Suspect]
     Indication: ALOPECIA
     Dosage: ONE ML TWICE DAILY (2 IN 1 D), TOPICAL
     Route: 061
     Dates: start: 20060101, end: 20061101
  2. LEVOTHYROXINE SODIUM [Concomitant]
  3. AETYLSALICYLIC ACID (ACETYLSALICYLIC ACID) [Concomitant]
  4. FELODIPINE [Concomitant]

REACTIONS (5)
  - NEOPLASM MALIGNANT [None]
  - PAIN OF SKIN [None]
  - RASH MACULO-PAPULAR [None]
  - SCAB [None]
  - SKIN EXFOLIATION [None]
